FAERS Safety Report 23226745 (Version 1)
Quarter: 2023Q4

REPORT INFORMATION
  Report Type: Spontaneous
  Country: DE (occurrence: DE)
  Receive Date: 20231124
  Receipt Date: 20231124
  Transmission Date: 20240110
  Serious: Yes (Other)
  Sender: FDA-Public Use
  Company Number: DE-BAXTER-2023BAX024867

PATIENT

DRUGS (16)
  1. MELPHALAN [Suspect]
     Active Substance: MELPHALAN
     Indication: Plasma cell myeloma refractory
     Dosage: FIRST LINE TREATMENT
     Route: 065
     Dates: start: 20190502, end: 20220131
  2. BORTEZOMIB [Suspect]
     Active Substance: BORTEZOMIB
     Indication: Plasma cell myeloma refractory
     Dosage: FIRST LINE TREATMENT
     Route: 065
     Dates: start: 20190502, end: 20220131
  3. LENALIDOMIDE [Suspect]
     Active Substance: LENALIDOMIDE
     Indication: Plasma cell myeloma refractory
     Dosage: FIRST LINE TREATMENT
     Route: 065
     Dates: start: 20190502, end: 20220131
  4. DOXORUBICIN [Suspect]
     Active Substance: DOXORUBICIN
     Indication: Plasma cell myeloma refractory
     Dosage: FOURTH LINE TREATMENT, AS A PART OF PACE REGIMEN
     Route: 065
     Dates: start: 20220902, end: 20221015
  5. POMALIDOMIDE [Suspect]
     Active Substance: POMALIDOMIDE
     Indication: Plasma cell myeloma refractory
     Dosage: SECOND LINE TREATMENT
     Route: 065
     Dates: start: 20220210, end: 20220810
  6. CYCLOPHOSPHAMIDE [Suspect]
     Active Substance: CYCLOPHOSPHAMIDE
     Indication: Plasma cell myeloma refractory
     Dosage: FIRST LINE TREATMENT
     Route: 065
     Dates: start: 20190502, end: 20220131
  7. CYCLOPHOSPHAMIDE [Suspect]
     Active Substance: CYCLOPHOSPHAMIDE
     Dosage: FOURTH LINE TREATMENT, AS A PART OF PACE REGIMEN
     Route: 065
     Dates: start: 20220902, end: 20221015
  8. CISPLATIN [Suspect]
     Active Substance: CISPLATIN
     Indication: Plasma cell myeloma refractory
     Dosage: FOURTH LINE TREATMENT, AS A PART OF PACE REGIMEN
     Route: 065
     Dates: start: 20220902, end: 20221015
  9. DOXORUBICIN HYDROCHLORIDE [Suspect]
     Active Substance: DOXORUBICIN HYDROCHLORIDE
     Indication: Plasma cell myeloma refractory
     Dosage: FIFTH LINE TREATMENT
     Route: 065
     Dates: start: 20221027, end: 20221110
  10. DARATUMUMAB [Suspect]
     Active Substance: DARATUMUMAB
     Indication: Plasma cell myeloma refractory
     Dosage: SECOND LINE TREATMENT
     Route: 065
     Dates: start: 20220210, end: 20220810
  11. DEXAMETHASONE [Suspect]
     Active Substance: DEXAMETHASONE
     Indication: Plasma cell myeloma refractory
     Dosage: THIRD LINE TREATMENT
     Route: 065
     Dates: start: 20220814, end: 20220910
  12. DEXAMETHASONE [Suspect]
     Active Substance: DEXAMETHASONE
     Dosage: FIRST LINE TREATMENT
     Route: 065
     Dates: start: 20190502, end: 20220131
  13. DEXAMETHASONE [Suspect]
     Active Substance: DEXAMETHASONE
     Dosage: SECOND LINE TREATMENT
     Route: 065
     Dates: start: 20220210, end: 20220810
  14. ISATUXIMAB [Suspect]
     Active Substance: ISATUXIMAB
     Indication: Plasma cell myeloma refractory
     Dosage: THIRD LINE TREATMENT
     Route: 065
     Dates: start: 20220814, end: 20220910
  15. ETOPOSIDE [Suspect]
     Active Substance: ETOPOSIDE
     Indication: Plasma cell myeloma refractory
     Dosage: FOURTH LINE TREATMENT, AS A PART OF PACE REGIMEN
     Route: 065
     Dates: start: 20220902, end: 20221015
  16. CARFILZOMIB [Suspect]
     Active Substance: CARFILZOMIB
     Indication: Plasma cell myeloma refractory
     Dosage: THIRD LINE TREATMENT
     Route: 065
     Dates: start: 20220814, end: 20220910

REACTIONS (1)
  - Plasma cell myeloma [Unknown]
